FAERS Safety Report 4303493-3 (Version None)
Quarter: 2004Q1

REPORT INFORMATION
  Report Type: 
  Country: None (occurrence: None)
  Receive Date: 20040224
  Receipt Date: 20040224
  Transmission Date: 20041129
  Serious: Yes (Hospitalization)
  Sender: FDA-Public Use
  Company Number: None

PATIENT
  Age: 13 Month
  Sex: Male
  Weight: 10.62 kg

DRUGS (1)
  1. HABITROL [Suspect]

REACTIONS (4)
  - ACCIDENTAL EXPOSURE [None]
  - ATAXIA [None]
  - MEDICATION ERROR [None]
  - VOMITING [None]
